FAERS Safety Report 13523434 (Version 1)
Quarter: 2017Q2

REPORT INFORMATION
  Report Type: Spontaneous
  Country: US (occurrence: US)
  Receive Date: 20170508
  Receipt Date: 20170508
  Transmission Date: 20170830
  Serious: No
  Sender: FDA-Public Use
  Company Number: US-VIFOR (INTERNATIONAL) INC.-VIT-2017-03627

PATIENT
  Sex: Male

DRUGS (16)
  1. LIPITOR [Concomitant]
     Active Substance: ATORVASTATIN CALCIUM
  2. TOPROL XL [Concomitant]
     Active Substance: METOPROLOL SUCCINATE
  3. ULORIC [Concomitant]
     Active Substance: FEBUXOSTAT
  4. GABAPENTIN. [Concomitant]
     Active Substance: GABAPENTIN
  5. PLAVIX [Concomitant]
     Active Substance: CLOPIDOGREL BISULFATE
  6. SENNOSIDE A+B [Concomitant]
     Active Substance: SENNOSIDES A AND B
  7. FLONASE ALERGY RELIEF [Concomitant]
  8. VELTASSA [Suspect]
     Active Substance: PATIROMER
  9. CELEXA [Concomitant]
     Active Substance: CITALOPRAM HYDROBROMIDE
  10. OMEPRAZOLE. [Concomitant]
     Active Substance: OMEPRAZOLE
  11. VELTASSA [Suspect]
     Active Substance: PATIROMER
     Indication: HYPERKALAEMIA
     Route: 048
     Dates: start: 20161230
  12. FERROUS SULFATE. [Concomitant]
     Active Substance: FERROUS SULFATE
  13. MAGNESIUM CITRATE. [Concomitant]
     Active Substance: MAGNESIUM CITRATE
  14. NEURONTIN [Concomitant]
     Active Substance: GABAPENTIN
  15. COLACE [Concomitant]
     Active Substance: DOCUSATE SODIUM
  16. METOPROLOL SUCCINATE. [Concomitant]
     Active Substance: METOPROLOL SUCCINATE

REACTIONS (3)
  - Feeling of body temperature change [Unknown]
  - Malaise [Unknown]
  - Drug dose omission [Unknown]
